FAERS Safety Report 13273520 (Version 6)
Quarter: 2019Q1

REPORT INFORMATION
  Report Type: Report from Study
  Country: US (occurrence: CA)
  Receive Date: 20170227
  Receipt Date: 20190306
  Transmission Date: 20190417
  Serious: Yes (Other)
  Sender: FDA-Public Use
  Company Number: US-SUNOVION-2017SUN000835

PATIENT
  Age: 66 Year
  Sex: Female

DRUGS (16)
  1. XOLAIR [Suspect]
     Active Substance: OMALIZUMAB
     Dosage: UNK; REGIMEN #8
     Route: 058
     Dates: start: 20171114
  2. XOLAIR [Suspect]
     Active Substance: OMALIZUMAB
     Indication: ASTHMA
     Dosage: 150 MG, EVERY 4 WEEKS
     Route: 058
     Dates: start: 20160115
  3. SALBUTAMOL [Concomitant]
     Active Substance: ALBUTEROL
     Dosage: UNK
  4. GLYCOPYRROLATE. [Suspect]
     Active Substance: GLYCOPYRROLATE
     Indication: ASTHMA
     Dosage: 1 DF (50 UG), QD
     Route: 055
     Dates: start: 201303, end: 20161013
  5. XOLAIR [Suspect]
     Active Substance: OMALIZUMAB
     Dosage: UNK; REGIMEN #6
     Route: 058
     Dates: start: 20160823
  6. XOLAIR [Suspect]
     Active Substance: OMALIZUMAB
     Dosage: UNK; REGIMEN #4
     Route: 058
     Dates: start: 20160628
  7. XOLAIR [Suspect]
     Active Substance: OMALIZUMAB
     Dosage: UNK; REGIMEN #5
     Route: 058
     Dates: start: 20160726
  8. XOLAIR [Suspect]
     Active Substance: OMALIZUMAB
     Dosage: 150 UNK, QMO
     Route: 058
  9. VENTOLIN [Concomitant]
     Active Substance: ALBUTEROL SULFATE
     Indication: ASTHMA
     Dosage: 100 ?G, UNK
  10. XOLAIR [Suspect]
     Active Substance: OMALIZUMAB
     Dosage: UNK; REGIMEN #2
     Route: 058
     Dates: start: 20160211
  11. XOLAIR [Suspect]
     Active Substance: OMALIZUMAB
     Dosage: 150 MG, UNK
     Route: 058
     Dates: start: 20180206
  12. XOLAIR [Suspect]
     Active Substance: OMALIZUMAB
     Dosage: UNK; REGIMEN #7
     Route: 058
     Dates: start: 20161018
  13. SINGULAIR [Concomitant]
     Active Substance: MONTELUKAST SODIUM
     Dosage: 10 MG, UNK
  14. SPIRIVA [Concomitant]
     Active Substance: TIOTROPIUM BROMIDE MONOHYDRATE
     Dosage: 2.5 ?G, UNK
     Dates: start: 20161013
  15. SYMBICORT [Concomitant]
     Active Substance: BUDESONIDE\FORMOTEROL FUMARATE DIHYDRATE
     Indication: ASTHMA
     Dosage: UNK (200/6 UG)
  16. XOLAIR [Suspect]
     Active Substance: OMALIZUMAB
     Dosage: UNK; REGIMEN #3
     Route: 058
     Dates: start: 20160407

REACTIONS (30)
  - Ear discomfort [Unknown]
  - Malaise [Unknown]
  - Forced expiratory volume decreased [Not Recovered/Not Resolved]
  - Dyspnoea [Recovering/Resolving]
  - Choking sensation [Unknown]
  - Swelling face [Unknown]
  - Blood pressure systolic increased [Not Recovered/Not Resolved]
  - Product use in unapproved indication [Unknown]
  - Nasopharyngitis [Not Recovered/Not Resolved]
  - Skin lesion [Not Recovered/Not Resolved]
  - Contusion [Not Recovered/Not Resolved]
  - Pruritus [Not Recovered/Not Resolved]
  - Perfume sensitivity [Unknown]
  - Choking [Unknown]
  - Peripheral swelling [Recovering/Resolving]
  - Hypoacusis [Unknown]
  - Drug ineffective [Recovering/Resolving]
  - Injection site pain [Unknown]
  - Feeling abnormal [Unknown]
  - Sinus disorder [Unknown]
  - Wheezing [Recovering/Resolving]
  - Pain in extremity [Unknown]
  - Obstructive airways disorder [Unknown]
  - Weight increased [Not Recovered/Not Resolved]
  - Cough [Recovering/Resolving]
  - Asthma [Recovering/Resolving]
  - Oedema [Unknown]
  - Tinnitus [Unknown]
  - Sinus polyp [Unknown]
  - Insomnia [Unknown]

NARRATIVE: CASE EVENT DATE: 201303
